FAERS Safety Report 9406976 (Version 1)
Quarter: 2013Q3

REPORT INFORMATION
  Report Type: Spontaneous
  Country: US (occurrence: US)
  Receive Date: 20130718
  Receipt Date: 20130718
  Transmission Date: 20140515
  Serious: No
  Sender: FDA-Public Use
  Company Number: US-PFIZER INC-2013207043

PATIENT
  Age: 80 Year
  Sex: Male
  Weight: 273 kg

DRUGS (1)
  1. VIAGRA [Suspect]
     Indication: PENIS DISORDER
     Dosage: 70 MG, UNK
     Dates: start: 201306, end: 2013

REACTIONS (2)
  - Off label use [Unknown]
  - Ejaculation disorder [Unknown]
